FAERS Safety Report 6413219-5 (Version None)
Quarter: 2009Q4

REPORT INFORMATION
  Report Type: 
  Country: None (occurrence: None)
  Receive Date: 20091026
  Receipt Date: 20091016
  Transmission Date: 20100525
  Serious: Yes (Other)
  Sender: FDA-Public Use
  Company Number: PHHY2009DE45393

PATIENT
  Sex: Female

DRUGS (8)
  1. TEGRETOL [Suspect]
     Indication: TRIGEMINAL NEURALGIA
     Dosage: 900 MG PER DAY
     Route: 048
  2. TEGRETOL [Interacting]
     Dosage: 1000 MG PER DAY
     Route: 048
  3. LEVOTHYROXINE SODIUM [Interacting]
     Indication: THYROID THERAPY
  4. ASPIRIN [Concomitant]
  5. BISOPROLOL [Concomitant]
  6. DIOVAN [Concomitant]
  7. CALCITRIOL [Concomitant]
  8. CALCIUM [Concomitant]

REACTIONS (3)
  - DRUG INTERACTION [None]
  - HYPERTENSION [None]
  - TRIGEMINAL NERVE DISORDER [None]
